FAERS Safety Report 20029614 (Version 1)
Quarter: 2021Q4

REPORT INFORMATION
  Report Type: Spontaneous
  Country: US (occurrence: US)
  Receive Date: 20211103
  Receipt Date: 20211103
  Transmission Date: 20220303
  Serious: No
  Sender: FDA-Public Use
  Company Number: US-UPSHER-SMITH LABORATORIES, LLC-2020USL00621

PATIENT
  Sex: Male
  Weight: 72.562 kg

DRUGS (6)
  1. JANTOVEN [Suspect]
     Active Substance: WARFARIN SODIUM
     Indication: Atrial fibrillation
     Dosage: 2.5 MG, 1X/DAY
     Route: 048
  2. JANTOVEN [Suspect]
     Active Substance: WARFARIN SODIUM
     Dosage: 2.5 MG, 1X/DAY
     Route: 048
     Dates: end: 2020
  3. JANTOVEN [Suspect]
     Active Substance: WARFARIN SODIUM
     Dosage: 1.25 MG, ONCE
     Route: 048
     Dates: start: 2020, end: 2020
  4. JANTOVEN [Suspect]
     Active Substance: WARFARIN SODIUM
     Dosage: 2.5 MG, 1X/DAY
     Route: 048
     Dates: start: 2020, end: 20201118
  5. TAMSULOSIN [Concomitant]
     Active Substance: TAMSULOSIN
  6. DIGOXIN [Concomitant]
     Active Substance: DIGOXIN
     Dosage: UNK

REACTIONS (1)
  - International normalised ratio increased [Recovered/Resolved]

NARRATIVE: CASE EVENT DATE: 20200101
